FAERS Safety Report 13354156 (Version 1)
Quarter: 2017Q1

REPORT INFORMATION
  Report Type: Spontaneous
  Country: US (occurrence: US)
  Receive Date: 20170321
  Receipt Date: 20170321
  Transmission Date: 20170429
  Serious: No
  Sender: FDA-Public Use
  Company Number: US-JNJFOC-20170313436

PATIENT
  Sex: Female

DRUGS (2)
  1. ZYRTEC [Suspect]
     Active Substance: CETIRIZINE HYDROCHLORIDE
     Indication: PRODUCT USED FOR UNKNOWN INDICATION
     Route: 048
  2. ZYRTEC [Suspect]
     Active Substance: CETIRIZINE HYDROCHLORIDE
     Route: 048

REACTIONS (7)
  - Rhinorrhoea [Unknown]
  - Oropharyngeal pain [Unknown]
  - Dry mouth [Unknown]
  - Gastrointestinal pain [Unknown]
  - Crying [Unknown]
  - Dyspnoea [Unknown]
  - Product formulation issue [Unknown]
